FAERS Safety Report 9798447 (Version 1)
Quarter: 2013Q4

REPORT INFORMATION
  Report Type: Spontaneous
  Country: AU (occurrence: None)
  Receive Date: 20131230
  Receipt Date: 20131230
  Transmission Date: 20140711
  Serious: Yes (Other)
  Sender: FDA-Public Use
  Company Number: 2013000368

PATIENT
  Sex: Male

DRUGS (8)
  1. ACEON (PERINDOPRIL ERBUMINE) TABLET [Suspect]
     Indication: PRODUCT USED FOR UNKNOWN INDICATION
  2. CLOPIDOGREL (CLOPIDOGREL) [Suspect]
     Indication: PRODUCT USED FOR UNKNOWN INDICATION
  3. ASPIRINE (ACETYLSALICYLIC ACID) [Concomitant]
  4. ATORVASTATIN CALCIUM (ATORVASTATIN CALCIUM) [Concomitant]
  5. HYDROXYCHLOROQUINE SULFATE [Suspect]
  6. DIGOXIN [Concomitant]
  7. ESOMEPRAZOLE MAGNESIUM [Concomitant]
  8. METOPROLOL TARTRATE [Concomitant]

REACTIONS (3)
  - Dyspnoea [None]
  - Agranulocytosis [None]
  - Renal failure acute [None]
